FAERS Safety Report 6559653-4 (Version None)
Quarter: 2010Q1

REPORT INFORMATION
  Report Type: 
  Country: None (occurrence: None)
  Receive Date: 20100129
  Receipt Date: 20090910
  Transmission Date: 20100710
  Serious: No
  Sender: FDA-Public Use
  Company Number: US-ABBOTT-09P-163-0596412-00

PATIENT
  Weight: 68.1 kg

DRUGS (5)
  1. HUMIRA [Suspect]
     Indication: CROHN'S DISEASE
     Dates: start: 20090818
  2. PENTASA [Concomitant]
     Indication: DRUG USE FOR UNKNOWN INDICATION
  3. CLARITIN [Concomitant]
     Indication: DRUG USE FOR UNKNOWN INDICATION
  4. PROPRANOLOL [Concomitant]
     Indication: MIGRAINE
  5. OPANA [Concomitant]
     Indication: PAIN

REACTIONS (6)
  - BRONCHITIS [None]
  - MIGRAINE [None]
  - NASAL CONGESTION [None]
  - PUNCTURE SITE DISCHARGE [None]
  - VOMITING [None]
  - WOUND COMPLICATION [None]
